FAERS Safety Report 4932023-8 (Version None)
Quarter: 2006Q1

REPORT INFORMATION
  Report Type: 
  Country: None (occurrence: None)
  Receive Date: 20060303
  Receipt Date: 20060227
  Transmission Date: 20060701
  Serious: Yes (Other)
  Sender: FDA-Public Use
  Company Number: MX-BRISTOL-MYERS SQUIBB COMPANY-13297601

PATIENT

DRUGS (2)
  1. CYTOXAN [Suspect]
     Indication: WEGENER'S GRANULOMATOSIS
     Route: 048
  2. STEROIDS [Concomitant]

REACTIONS (1)
  - GASTROINTESTINAL OBSTRUCTION [None]
